FAERS Safety Report 6361203-2 (Version None)
Quarter: 2009Q3

REPORT INFORMATION
  Report Type: 
  Country: None (occurrence: None)
  Receive Date: 20090915
  Receipt Date: 20090915
  Transmission Date: 20100115
  Serious: Yes (Hospitalization)
  Sender: FDA-Public Use
  Company Number: None

PATIENT
  Age: 56 Year
  Sex: Female
  Weight: 136.0791 kg

DRUGS (2)
  1. HEALTH A2Z ALLERGY RELIEF 25MG A+Z PHARMACEUTICAL, INC., HAUPPAUGE, NE [Suspect]
     Indication: RHINORRHOEA
     Dosage: 1 4-6 HRS
     Dates: start: 20090825, end: 20090825
  2. HEALTH A2Z ALLERGY RELIEF 25MG A+Z PHARMACEUTICAL, INC., HAUPPAUGE, NE [Suspect]
     Indication: SEASONAL ALLERGY
     Dosage: 1 4-6 HRS
     Dates: start: 20090825, end: 20090825

REACTIONS (1)
  - MYOCARDIAL INFARCTION [None]
